FAERS Safety Report 9127194 (Version 1)
Quarter: 2013Q1

REPORT INFORMATION
  Report Type: Report from Study
  Country: CA (occurrence: CA)
  Receive Date: 20130228
  Receipt Date: 20130228
  Transmission Date: 20140127
  Serious: Yes (Other)
  Sender: FDA-Public Use
  Company Number: CA-JNJFOC-20130213710

PATIENT
  Age: 27 Year
  Sex: Female
  Weight: 93.7 kg

DRUGS (8)
  1. REMICADE [Suspect]
     Indication: CROHN^S DISEASE
     Dosage: 2ND LOADING DOSE
     Route: 042
     Dates: start: 20130219
  2. REMICADE [Suspect]
     Indication: CROHN^S DISEASE
     Route: 042
     Dates: start: 20130204
  3. PREDNISONE [Concomitant]
     Route: 065
  4. AZATHIOPRINE [Concomitant]
     Route: 065
  5. PANTOPRAZOLE [Concomitant]
     Route: 065
  6. CALCIUM [Concomitant]
     Route: 065
  7. MULTIVITAMINS [Concomitant]
     Route: 065
  8. ACIDOPHILUS [Concomitant]
     Route: 065

REACTIONS (4)
  - Hypotension [Recovered/Resolved]
  - Heart rate increased [Recovered/Resolved]
  - Hyperhidrosis [Recovered/Resolved]
  - Hot flush [Recovered/Resolved]
